FAERS Safety Report 8207862-0 (Version None)
Quarter: 2012Q1

REPORT INFORMATION
  Report Type: 
  Country: None (occurrence: None)
  Receive Date: 20120227
  Receipt Date: 20111115
  Transmission Date: 20120608
  Serious: No
  Sender: FDA-Public Use
  Company Number: 340341

PATIENT
  Age: 66 Year
  Sex: Male

DRUGS (1)
  1. VICTOZA [Suspect]
     Indication: PRODUCT USED FOR UNKNOWN INDICATION
     Dosage: 0.6 MG

REACTIONS (5)
  - NAUSEA [None]
  - HICCUPS [None]
  - DIZZINESS [None]
  - ERUCTATION [None]
  - VOMITING [None]
